FAERS Safety Report 19950144 (Version 1)
Quarter: 2021Q4

REPORT INFORMATION
  Report Type: Spontaneous
  Country: US (occurrence: US)
  Receive Date: 20211011
  Receipt Date: 20211011
  Transmission Date: 20220304
  Serious: Yes (Hospitalization)
  Sender: FDA-Public Use
  Company Number: None

PATIENT
  Sex: Male

DRUGS (2)
  1. STELARA [Suspect]
     Active Substance: USTEKINUMAB
     Indication: Colitis ulcerative
     Dosage: ?          OTHER FREQUENCY:EVERY 8 WEEKS;
     Route: 058
     Dates: start: 202108
  2. MODERNA COVID-19 VACCINE [Suspect]
     Active Substance: CX-024414

REACTIONS (3)
  - Abdominal pain [None]
  - Condition aggravated [None]
  - Inflammation [None]
